FAERS Safety Report 16473068 (Version 1)
Quarter: 2019Q2

REPORT INFORMATION
  Report Type: Spontaneous
  Country: FR (occurrence: FR)
  Receive Date: 20190625
  Receipt Date: 20190625
  Transmission Date: 20190711
  Serious: Yes (Hospitalization)
  Sender: FDA-Public Use
  Company Number: FR-TEVA-2019-FR-1068035

PATIENT
  Age: 75 Year
  Sex: Male
  Weight: 58.6 kg

DRUGS (10)
  1. SERESTA 50 MG, COMPRIM? S?CABLE [Suspect]
     Active Substance: OXAZEPAM
     Indication: ANXIETY
     Route: 048
  2. LANSOYL [Concomitant]
     Active Substance: MINERAL OIL
     Indication: CONSTIPATION
     Dosage: 2 DOSAGE FORMS DAILY;
     Route: 048
  3. MIRTAZAPINE. [Suspect]
     Active Substance: MIRTAZAPINE
     Indication: DEPRESSION
     Dosage: 15 MILLIGRAM DAILY;
     Route: 048
  4. GLUCOSE [Concomitant]
     Active Substance: DEXTROSE
     Indication: PROPHYLAXIS AGAINST DEHYDRATION
     Dosage: 1 LITERS DAILY;
     Route: 058
  5. KARDEGIC [Suspect]
     Active Substance: ASPIRIN DL-LYSINE
     Indication: CARDIOVASCULAR EVENT PROPHYLAXIS
     Dosage: 75 MILLIGRAM DAILY;
     Route: 048
     Dates: end: 20180404
  6. MOVICOL [Concomitant]
     Active Substance: POLYETHYLENE GLYCOL 3350\POTASSIUM CHLORIDE\SODIUM BICARBONATE\SODIUM CHLORIDE
     Indication: CONSTIPATION
     Dosage: 2 DOSAGE FORMS DAILY;
     Route: 048
  7. LEPTICUR 10 MG, COMPRIM? [Suspect]
     Active Substance: TROPATEPINE HYDROCHLORIDE
     Indication: PARKINSONISM
     Dosage: 20 MILLIGRAM DAILY;
     Route: 048
  8. DIPIPERON (PIPAMPERONE HYDROCHLORIDE) [Suspect]
     Active Substance: PIPAMPERONE HYDROCHLORIDE
     Indication: AGITATION
     Dosage: 10 GTT DAILY;
     Route: 048
  9. TIAPRIDAL 5 MG/GOUTTE, SOLUTION BUVABLE EN GOUTTES [Suspect]
     Active Substance: TIAPRIDE HYDROCHLORIDE
     Indication: AGITATION
     Dosage: 104 GTT DAILY;
     Route: 048
  10. PARACETAMOL [Concomitant]
     Active Substance: ACETAMINOPHEN
     Indication: PAIN
     Route: 054

REACTIONS (1)
  - Microcytic anaemia [Recovered/Resolved]

NARRATIVE: CASE EVENT DATE: 20180404
